FAERS Safety Report 9605244 (Version 1)
Quarter: 2013Q4

REPORT INFORMATION
  Report Type: Report from Study
  Country: CA (occurrence: CA)
  Receive Date: 20131008
  Receipt Date: 20131008
  Transmission Date: 20140711
  Serious: Yes (Hospitalization, Other)
  Sender: FDA-Public Use
  Company Number: PHHY2013CA112227

PATIENT
  Sex: Female

DRUGS (4)
  1. ACLASTA [Suspect]
     Indication: OSTEOPOROSIS
     Dosage: UNK
     Route: 042
     Dates: start: 20100218
  2. ACLASTA [Suspect]
     Dosage: UNK
     Route: 042
     Dates: start: 20110214
  3. ACLASTA [Suspect]
     Dosage: UNK
     Route: 042
     Dates: start: 20120207
  4. ACLASTA [Suspect]
     Dosage: UNK
     Route: 042
     Dates: start: 20131002

REACTIONS (6)
  - Abscess [Unknown]
  - Soft tissue injury [Unknown]
  - Drug administration error [Unknown]
  - Local swelling [Unknown]
  - Erythema [Unknown]
  - Pain in extremity [Unknown]
